FAERS Safety Report 14991338 (Version 1)
Quarter: 2018Q2

REPORT INFORMATION
  Report Type: Spontaneous
  Country: US (occurrence: US)
  Receive Date: 20180608
  Receipt Date: 20180608
  Transmission Date: 20180711
  Serious: No
  Sender: FDA-Public Use
  Company Number: US-GLAXOSMITHKLINE-US2018097400

PATIENT
  Sex: Female

DRUGS (2)
  1. FLONASE ALLERGY RELIEF [Suspect]
     Active Substance: FLUTICASONE PROPIONATE
     Indication: HYPERSENSITIVITY
     Dosage: ALMOST A MONTH
  2. FLONASE ALLERGY RELIEF [Suspect]
     Active Substance: FLUTICASONE PROPIONATE
     Indication: DYSPNOEA

REACTIONS (7)
  - Fatigue [Unknown]
  - Oral pain [Unknown]
  - Product use in unapproved indication [Unknown]
  - Sneezing [Unknown]
  - Drug ineffective for unapproved indication [Unknown]
  - Rhinorrhoea [Unknown]
  - Gingival pain [Unknown]
